FAERS Safety Report 7268021-1 (Version None)
Quarter: 2011Q1

REPORT INFORMATION
  Report Type: 
  Country: None (occurrence: None)
  Receive Date: 20110201
  Receipt Date: 20101015
  Transmission Date: 20110831
  Serious: No
  Sender: FDA-Public Use
  Company Number: US-BAYER-201022626BCC

PATIENT
  Sex: Male
  Weight: 90.909 kg

DRUGS (2)
  1. ALEVE [Suspect]
     Indication: PAIN IN EXTREMITY
     Dosage: 6 DF, UNK
     Route: 048
     Dates: start: 20101014, end: 20101014
  2. ASPIRIN [Concomitant]
     Dosage: 1280 MG, ONCE
     Route: 048
     Dates: start: 20101014, end: 20101014

REACTIONS (1)
  - PAIN [None]
